FAERS Safety Report 7292786-6 (Version None)
Quarter: 2011Q1

REPORT INFORMATION
  Report Type: 
  Country: None (occurrence: None)
  Receive Date: 20110215
  Receipt Date: 20110204
  Transmission Date: 20110831
  Serious: Yes (Other)
  Sender: FDA-Public Use
  Company Number: JP-SANOFI-AVENTIS-2011SA005006

PATIENT
  Age: 37 Year
  Sex: Female

DRUGS (1)
  1. MYSLEE [Suspect]
     Route: 048
     Dates: start: 20081001, end: 20081101

REACTIONS (1)
  - LIVER DISORDER [None]
